FAERS Safety Report 8554146 (Version 2)
Quarter: 2013Q2

REPORT INFORMATION
  Report Type: Spontaneous
  Country: US (occurrence: None)
  Receive Date: 20120315
  Receipt Date: 20130107
  Transmission Date: 20140414
  Serious: Yes (Other)
  Sender: FDA-Public Use
  Company Number: PHHY2011US18827

PATIENT
  Age: 44 Year
  Sex: Female
  Weight: 81.6 kg

DRUGS (2)
  1. GILENYA (FTY) CAPSULE, 0.5MG [Suspect]
     Indication: MULTIPLE SCLEROSIS
     Dosage: 0.5 MG, DAILY, ORAL
     Route: 048
     Dates: start: 20110113, end: 20110311
  2. LEVAQUIN (LEVOFLOXACIN) [Concomitant]

REACTIONS (7)
  - WHEEZING [None]
  - FATIGUE [None]
  - COUGH [None]
  - RESPIRATORY TRACT CONGESTION [None]
  - Respiratory tract infection [None]
  - Nasopharyngitis [None]
  - Productive cough [None]
